FAERS Safety Report 9260507 (Version 1)
Quarter: 2013Q2

REPORT INFORMATION
  Report Type: Spontaneous
  Country: US (occurrence: US)
  Receive Date: 20130429
  Receipt Date: 20130429
  Transmission Date: 20140414
  Serious: No
  Sender: FDA-Public Use
  Company Number: US-PFIZER INC-2013133415

PATIENT
  Age: 59 Year
  Sex: Male
  Weight: 140.59 kg

DRUGS (5)
  1. NEURONTIN [Suspect]
     Dosage: UNK
     Dates: start: 201301, end: 201302
  2. ACTOS [Concomitant]
     Indication: DIABETES MELLITUS
     Dosage: UNK
  3. DIOVANE [Concomitant]
     Indication: HYPERTENSION
     Dosage: UNK
  4. CYMBALTA [Concomitant]
     Indication: PAIN
     Dosage: UNK
  5. BUTRANS [Concomitant]
     Indication: PAIN
     Dosage: UNK
     Route: 062

REACTIONS (4)
  - Insomnia [Unknown]
  - Paraesthesia [Unknown]
  - Feeling abnormal [Unknown]
  - Drug ineffective [Unknown]
